FAERS Safety Report 4509277-5 (Version None)
Quarter: 2004Q4

REPORT INFORMATION
  Report Type: 
  Country: None (occurrence: None)
  Receive Date: 20041123
  Receipt Date: 20041115
  Transmission Date: 20050328
  Serious: Yes (Life-Threatening, Disabling)
  Sender: FDA-Public Use
  Company Number: US-MERCK-0411USA02662

PATIENT
  Age: 61 Year
  Sex: Female

DRUGS (8)
  1. VIOXX [Suspect]
     Indication: ARTHRITIS
     Route: 048
     Dates: start: 20010101, end: 20040101
  2. [THERAPY UNSPECIFIED] [Concomitant]
     Route: 065
  3. CARDIZEM [Concomitant]
     Route: 065
  4. LIPITOR [Concomitant]
     Route: 065
  5. PROTONIX [Concomitant]
     Route: 065
  6. LEVOTHYROXINE SODIUM [Concomitant]
     Route: 065
  7. ALLEGRA [Concomitant]
     Route: 065
  8. ULTRACET [Concomitant]
     Route: 065

REACTIONS (3)
  - DYSPNOEA [None]
  - HYPOTHYROIDISM [None]
  - POOR PERIPHERAL CIRCULATION [None]
